FAERS Safety Report 4476910-6 (Version None)
Quarter: 2004Q4

REPORT INFORMATION
  Report Type: 
  Country: None (occurrence: None)
  Receive Date: 20041013
  Receipt Date: 20040927
  Transmission Date: 20050328
  Serious: Yes (Hospitalization)
  Sender: FDA-Public Use
  Company Number: JP_030901795

PATIENT
  Age: 58 Year
  Sex: Male
  Weight: 56 kg

DRUGS (8)
  1. GEMZAR [Suspect]
     Indication: PANCREATIC CARCINOMA
     Dosage: 1000 MG/M2/OTHER
     Dates: start: 20020709, end: 20020820
  2. NIZATIDINE [Concomitant]
  3. PROMAC (POLAPREZINC) [Concomitant]
  4. VOLTAREN [Concomitant]
  5. TANATRIL (IMIDAPRIL HYDROCHLORIDE) [Concomitant]
  6. HYPEN (ETODOLAC) [Concomitant]
  7. FLUCAM (AMPIROXICAM ) [Concomitant]
  8. ADALAT [Concomitant]

REACTIONS (13)
  - CONSTIPATION [None]
  - DECREASED APPETITE [None]
  - GENERAL PHYSICAL HEALTH DETERIORATION [None]
  - HAEMOGLOBIN DECREASED [None]
  - JAUNDICE CHOLESTATIC [None]
  - MALAISE [None]
  - MALIGNANT NEOPLASM PROGRESSION [None]
  - METASTASES TO LIVER [None]
  - NAUSEA [None]
  - PANCREATIC CARCINOMA STAGE IV [None]
  - PLATELET COUNT DECREASED [None]
  - PYREXIA [None]
  - URINE OUTPUT DECREASED [None]
